FAERS Safety Report 10217504 (Version 2)
Quarter: 2014Q2

REPORT INFORMATION
  Report Type: Spontaneous
  Country: DE (occurrence: BE)
  Receive Date: 20140604
  Receipt Date: 20140616
  Transmission Date: 20141212
  Serious: Yes (Hospitalization)
  Sender: FDA-Public Use
  Company Number: BE-MERZ NORTH AMERICA, INC.-14MRZ-00217

PATIENT
  Age: 47 Year
  Sex: Female

DRUGS (4)
  1. AETHOXYSKLEROL [Suspect]
     Indication: VARICOSE VEIN
  2. CLEXANE [Concomitant]
  3. TORENTAL [Concomitant]
  4. PROSTIN [Concomitant]

REACTIONS (3)
  - Skin discolouration [None]
  - Peripheral swelling [None]
  - Skin hyperpigmentation [None]
